FAERS Safety Report 8911747 (Version 1)
Quarter: 2012Q4

REPORT INFORMATION
  Report Type: 
  Country: US (occurrence: US)
  Receive Date: 20121116
  Receipt Date: 20121116
  Transmission Date: 20130627
  Serious: Yes (Other)
  Sender: FDA-Public Use
  Company Number: US-PFIZER INC-2012285943

PATIENT
  Age: 51 Year
  Sex: Female
  Weight: 54.42 kg

DRUGS (7)
  1. CHANTIX [Suspect]
     Indication: SMOKING CESSATION THERAPY
     Dosage: UNK
     Dates: start: 2012
  2. OXYCODONE [Concomitant]
     Dosage: UNK, as needed
  3. LASIX [Concomitant]
     Dosage: UNK, as needed
  4. VALIUM [Concomitant]
     Indication: ANXIETY
     Dosage: 10 mg, as needed
  5. IRON [Concomitant]
     Dosage: UNK
  6. POTASSIUM [Concomitant]
     Dosage: UNK
  7. PREVACID [Concomitant]
     Dosage: UNK

REACTIONS (3)
  - Cellulitis [Recovered/Resolved]
  - Bedridden [Unknown]
  - Drug ineffective [Unknown]
